FAERS Safety Report 6652774-7 (Version None)
Quarter: 2010Q1

REPORT INFORMATION
  Report Type: 
  Country: None (occurrence: None)
  Receive Date: 20100325
  Receipt Date: 20100325
  Transmission Date: 20100710
  Serious: No
  Sender: FDA-Public Use
  Company Number: None

PATIENT
  Age: 49 Year
  Sex: Female
  Weight: 56.6996 kg

DRUGS (1)
  1. CIPROFLOXACIN HYDROCHLORIDE [Suspect]
     Indication: URINARY TRACT INFECTION
     Dosage: 1 TWICE A DAY PO
     Route: 048
     Dates: start: 20100208, end: 20100212

REACTIONS (6)
  - ABASIA [None]
  - ARTHRALGIA [None]
  - BONE PAIN [None]
  - FEAR [None]
  - MYALGIA [None]
  - TENDONITIS [None]
